FAERS Safety Report 18553503 (Version 4)
Quarter: 2022Q4

REPORT INFORMATION
  Report Type: Report from Study
  Country: US (occurrence: US)
  Receive Date: 20201127
  Receipt Date: 20221015
  Transmission Date: 20230112
  Serious: Yes (Hospitalization, Other)
  Sender: FDA-Public Use
  Company Number: US-TAKEDA-2020TUS052733

PATIENT
  Age: 61 Year
  Sex: Male

DRUGS (12)
  1. TEDUGLUTIDE [Suspect]
     Active Substance: TEDUGLUTIDE
     Indication: Short-bowel syndrome
     Dosage: 0.71 MILLILITER, QD
     Route: 058
  2. TEDUGLUTIDE [Suspect]
     Active Substance: TEDUGLUTIDE
     Indication: Short-bowel syndrome
     Dosage: 0.71 MILLILITER, QD
     Route: 058
  3. TEDUGLUTIDE [Suspect]
     Active Substance: TEDUGLUTIDE
     Indication: Short-bowel syndrome
     Dosage: 0.71 MILLILITER, QD
     Route: 058
  4. TEDUGLUTIDE [Suspect]
     Active Substance: TEDUGLUTIDE
     Indication: Short-bowel syndrome
     Dosage: 0.71 MILLILITER, QD
     Route: 058
  5. TEDUGLUTIDE [Suspect]
     Active Substance: TEDUGLUTIDE
     Dosage: 7.1 MILLIGRAM, QD
     Route: 058
     Dates: start: 20181111, end: 20220516
  6. TEDUGLUTIDE [Suspect]
     Active Substance: TEDUGLUTIDE
     Dosage: 7.1 MILLIGRAM, QD
     Route: 058
     Dates: start: 20181111, end: 20220516
  7. TEDUGLUTIDE [Suspect]
     Active Substance: TEDUGLUTIDE
     Dosage: 7.1 MILLIGRAM, QD
     Route: 058
     Dates: start: 20181111, end: 20220516
  8. TEDUGLUTIDE [Suspect]
     Active Substance: TEDUGLUTIDE
     Dosage: 7.1 MILLIGRAM, QD
     Route: 058
     Dates: start: 20181111, end: 20220516
  9. TEDUGLUTIDE [Suspect]
     Active Substance: TEDUGLUTIDE
     Dosage: 7.1 MILLIGRAM, QD
     Route: 058
     Dates: start: 20181111, end: 20221005
  10. TEDUGLUTIDE [Suspect]
     Active Substance: TEDUGLUTIDE
     Dosage: 7.1 MILLIGRAM, QD
     Route: 058
     Dates: start: 20181111, end: 20221005
  11. TEDUGLUTIDE [Suspect]
     Active Substance: TEDUGLUTIDE
     Dosage: 7.1 MILLIGRAM, QD
     Route: 058
     Dates: start: 20181111, end: 20221005
  12. TEDUGLUTIDE [Suspect]
     Active Substance: TEDUGLUTIDE
     Dosage: 7.1 MILLIGRAM, QD
     Route: 058
     Dates: start: 20181111, end: 20221005

REACTIONS (5)
  - Vascular device infection [Recovered/Resolved]
  - Heart rate increased [Recovered/Resolved]
  - Urinary tract infection [Unknown]
  - Drug resistance [Unknown]
  - Depression [Unknown]

NARRATIVE: CASE EVENT DATE: 20220131
